FAERS Safety Report 8147759-8 (Version None)
Quarter: 2012Q1

REPORT INFORMATION
  Report Type: 
  Country: None (occurrence: None)
  Receive Date: 20120218
  Receipt Date: 20110315
  Transmission Date: 20120608
  Serious: No
  Sender: FDA-Public Use
  Company Number: US-ALLERGAN-1103772US

PATIENT
  Age: 40 Year
  Sex: Female

DRUGS (2)
  1. BOTOX COSMETIC [Suspect]
     Dosage: UNK UNITS, SINGLE
     Dates: start: 20110311, end: 20110311
  2. BOTOX COSMETIC [Suspect]
     Indication: SKIN WRINKLING
     Dosage: 30 UNITS, SINGLE
     Dates: start: 20110225, end: 20110225

REACTIONS (3)
  - PHOBIA [None]
  - DIZZINESS [None]
  - NAUSEA [None]
